FAERS Safety Report 15159272 (Version 1)
Quarter: 2018Q3

REPORT INFORMATION
  Report Type: Spontaneous
  Country: ES (occurrence: ES)
  Receive Date: 20180718
  Receipt Date: 20180718
  Transmission Date: 20181010
  Serious: Yes (Other)
  Sender: FDA-Public Use
  Company Number: ES-EISAI MEDICAL RESEARCH-EC-2018-042669

PATIENT
  Sex: Female

DRUGS (1)
  1. LENVIMA [Suspect]
     Active Substance: LENVATINIB
     Indication: THYROID CANCER
     Dosage: UNKNOWN
     Route: 048

REACTIONS (3)
  - International normalised ratio increased [Recovered/Resolved]
  - Acute kidney injury [Recovered/Resolved]
  - Adrenal insufficiency [Recovered/Resolved]
